FAERS Safety Report 9752038 (Version 2)
Quarter: 2014Q1

REPORT INFORMATION
  Report Type: Report from Study
  Country: CA (occurrence: CA)
  Receive Date: 20131213
  Receipt Date: 20140205
  Transmission Date: 20141002
  Serious: Yes (Hospitalization)
  Sender: FDA-Public Use
  Company Number: CA-ROCHE-1318686

PATIENT
  Age: 57 Year
  Sex: Female

DRUGS (19)
  1. RITUXAN [Suspect]
     Indication: RHEUMATOID ARTHRITIS
     Dosage: DAY 1, 15
     Route: 042
     Dates: start: 20130530, end: 20130613
  2. PLAQUENIL [Concomitant]
  3. PREDNISONE [Concomitant]
  4. DOMPERIDONE [Concomitant]
  5. ELAVIL (CANADA) [Concomitant]
  6. VENLAFAXINE [Concomitant]
  7. BISOPROLOL [Concomitant]
  8. FLURAZEPAM [Concomitant]
  9. CLONAZEPAM [Concomitant]
  10. CALCITE D [Concomitant]
  11. ESOMEPRAZOLE [Concomitant]
  12. ACETAMINOPHEN [Concomitant]
  13. NAPROXEN [Concomitant]
  14. LAX-A-DAY [Concomitant]
  15. NASONEX [Concomitant]
  16. HYDROVAL [Concomitant]
     Route: 061
  17. ACETAMINOPHEN [Concomitant]
     Indication: PREMEDICATION
     Route: 048
     Dates: start: 20130530, end: 20130613
  18. DIMENHYDRINATE/PYRIDOXINE HYDROCHLORIDE [Concomitant]
     Indication: PREMEDICATION
     Route: 048
     Dates: start: 20130530, end: 20130613
  19. METHYLPREDNISOLONE [Concomitant]
     Indication: PREMEDICATION
     Route: 042
     Dates: start: 20130530, end: 20130613

REACTIONS (1)
  - Febrile neutropenia [Unknown]
